FAERS Safety Report 15590138 (Version 4)
Quarter: 2018Q4

REPORT INFORMATION
  Report Type: Spontaneous
  Country: US (occurrence: US)
  Receive Date: 20181106
  Receipt Date: 20181130
  Transmission Date: 20190205
  Serious: Yes (Other)
  Sender: FDA-Public Use
  Company Number: US-GLAXOSMITHKLINE-US2018198583

PATIENT
  Age: 73 Year
  Sex: Male

DRUGS (1)
  1. CITRUCEL SUSPENSION ORANGE ORAL POWDER [Suspect]
     Active Substance: METHYLCELLULOSES
     Indication: CONSTIPATION
     Dosage: UNK
     Dates: end: 20181030

REACTIONS (6)
  - Retching [Recovered/Resolved]
  - Incorrect product administration duration [Unknown]
  - Choking [Recovered/Resolved]
  - Product complaint [Unknown]
  - Product taste abnormal [Unknown]
  - Product odour abnormal [Unknown]

NARRATIVE: CASE EVENT DATE: 20181030
